FAERS Safety Report 15989526 (Version 8)
Quarter: 2019Q3

REPORT INFORMATION
  Report Type: Spontaneous
  Country: US (occurrence: US)
  Receive Date: 20190221
  Receipt Date: 20190809
  Transmission Date: 20191004
  Serious: No
  Sender: FDA-Public Use
  Company Number: US-PFIZER INC-2019058031

PATIENT
  Age: 58 Year
  Sex: Female
  Weight: 78 kg

DRUGS (14)
  1. FLECTOR [Concomitant]
     Active Substance: DICLOFENAC EPOLAMINE
     Indication: BACK DISORDER
     Dosage: UNK
  2. CYCLOBENZAPRINE. [Concomitant]
     Active Substance: CYCLOBENZAPRINE
     Indication: FIBROMYALGIA
     Dosage: 10 MG, 2X/DAY
     Route: 048
     Dates: start: 20180426
  3. LIDOCAINE. [Concomitant]
     Active Substance: LIDOCAINE
     Indication: BACK DISORDER
     Dosage: UNK, AS NEEDED
     Dates: start: 201905
  4. FLINTSTONES COMPLETE [Concomitant]
     Active Substance: VITAMINS
     Indication: GASTRECTOMY
     Dosage: UNK, 2X/DAY (1 BY MOUTH TWICE DAILY)
     Route: 048
     Dates: start: 201803
  5. CYCLOBENZAPRINE. [Concomitant]
     Active Substance: CYCLOBENZAPRINE
     Indication: BACK DISORDER
  6. LYRICA [Suspect]
     Active Substance: PREGABALIN
     Dosage: 100 MG, 2X/DAY (2 IN MORNING 2 AT NIGHT)
     Route: 048
  7. LYRICA [Suspect]
     Active Substance: PREGABALIN
     Indication: FIBROMYALGIA
     Dosage: 50 MG, 2X/DAY
     Route: 048
     Dates: start: 20180119
  8. CALCIUM [Concomitant]
     Active Substance: CALCIUM
     Indication: GASTRECTOMY
     Dosage: UNK UNK, 2X/DAY (1 BY MOUTH TWICE DAILY)
     Route: 048
     Dates: start: 201805
  9. LYRICA [Suspect]
     Active Substance: PREGABALIN
     Indication: PAIN
     Dosage: UNK
     Route: 048
  10. LYRICA [Suspect]
     Active Substance: PREGABALIN
     Dosage: 50 MG, 2X/DAY
     Route: 048
     Dates: start: 20180509, end: 201901
  11. LYRICA [Suspect]
     Active Substance: PREGABALIN
     Dosage: 50 MG, 2X/DAY
     Route: 048
  12. PERCOCET [Concomitant]
     Active Substance: ACETAMINOPHEN\OXYCODONE HYDROCHLORIDE
     Indication: BACK DISORDER
     Dosage: UNK
  13. TRAMADOL. [Concomitant]
     Active Substance: TRAMADOL
     Indication: BACK DISORDER
     Dosage: 50 MG, 2X/DAY
  14. FLINTSTONE VITAMINS W/IRON [Concomitant]
     Dosage: UNK

REACTIONS (12)
  - Movement disorder [Not Recovered/Not Resolved]
  - Joint injury [Unknown]
  - Therapeutic product effect decreased [Unknown]
  - Fall [Unknown]
  - Anxiety [Unknown]
  - Insomnia [Unknown]
  - Musculoskeletal stiffness [Unknown]
  - Spinal pain [Unknown]
  - Feeling abnormal [Unknown]
  - Weight increased [Not Recovered/Not Resolved]
  - Weight loss poor [Not Recovered/Not Resolved]
  - Depression [Unknown]
